FAERS Safety Report 7374960-3 (Version None)
Quarter: 2011Q1

REPORT INFORMATION
  Report Type: 
  Country: None (occurrence: None)
  Receive Date: 20110325
  Receipt Date: 20110311
  Transmission Date: 20110831
  Serious: Yes (Other)
  Sender: FDA-Public Use
  Company Number: PHFR2011GB01912

PATIENT
  Sex: Female

DRUGS (1)
  1. CLOZARIL [Suspect]
     Indication: SCHIZOPHRENIA
     Dosage: UNK
     Route: 048
     Dates: start: 19951003, end: 20070720

REACTIONS (4)
  - CONNECTIVE TISSUE DISORDER [None]
  - VENTRICULAR EXTRASYSTOLES [None]
  - HYPERTENSION [None]
  - ELECTROCARDIOGRAM ABNORMAL [None]
